FAERS Safety Report 5953215-5 (Version None)
Quarter: 2008Q4

REPORT INFORMATION
  Report Type: 
  Country: None (occurrence: None)
  Receive Date: 20081114
  Receipt Date: 20081105
  Transmission Date: 20090506
  Serious: Yes (Hospitalization)
  Sender: FDA-Public Use
  Company Number: PHHY2008DE27380

PATIENT
  Age: 53 Year
  Sex: Female

DRUGS (2)
  1. LEPONEX [Suspect]
     Indication: SCHIZOPHRENIA, PARANOID TYPE
     Dosage: 150 MG, QD
     Route: 048
  2. HALDOL [Concomitant]
     Dosage: 3 ML, TIW

REACTIONS (2)
  - BREAST CANCER [None]
  - BREAST OPERATION [None]
